FAERS Safety Report 5140118-1 (Version None)
Quarter: 2006Q4

REPORT INFORMATION
  Report Type: 
  Country: None (occurrence: None)
  Receive Date: 20061031
  Receipt Date: 20061024
  Transmission Date: 20070319
  Serious: Yes (Hospitalization)
  Sender: FDA-Public Use
  Company Number: FR-AVENTIS-200613718FR

PATIENT
  Age: 65 Year
  Sex: Male

DRUGS (3)
  1. FLAGYL [Suspect]
     Indication: DIVERTICULUM
     Route: 048
     Dates: start: 20060701, end: 20060701
  2. FLAGYL [Suspect]
     Indication: SUPERINFECTION
     Route: 048
     Dates: start: 20060701, end: 20060701
  3. FLAGYL [Suspect]
     Route: 048
     Dates: start: 20061001, end: 20061018

REACTIONS (1)
  - CONVULSION [None]
